FAERS Safety Report 10363068 (Version 6)
Quarter: 2018Q4

REPORT INFORMATION
  Report Type: Report from Study
  Country: US (occurrence: US)
  Receive Date: 20140805
  Receipt Date: 20181114
  Transmission Date: 20190204
  Serious: Yes (Other)
  Sender: FDA-Public Use
  Company Number: US-SA-2014SA105101

PATIENT
  Age: 27 Year
  Sex: Male

DRUGS (4)
  1. AGALSIDASE BETA [Suspect]
     Active Substance: AGALSIDASE BETA
     Dosage: 95(UNITS: NOT SPECIFIED), Q2
     Route: 041
     Dates: start: 20161013
  2. LISINOPRIL. [Concomitant]
     Active Substance: LISINOPRIL
     Dosage: UNK
  3. AGALSIDASE BETA [Suspect]
     Active Substance: AGALSIDASE BETA
     Indication: FABRY^S DISEASE
     Dosage: 95 MG,UNK
     Route: 041
     Dates: start: 20120314
  4. METOPROLOL TARTRATE. [Concomitant]
     Active Substance: METOPROLOL TARTRATE
     Dosage: UNK

REACTIONS (7)
  - Hypotension [Unknown]
  - Infusion related reaction [Recovered/Resolved]
  - Mouth swelling [Recovered/Resolved]
  - Paternal exposure during pregnancy [Unknown]
  - Chest pain [Recovered/Resolved]
  - Left ventricle outflow tract obstruction [Unknown]
  - Swollen tongue [Recovered/Resolved]
